FAERS Safety Report 8070261-9 (Version None)
Quarter: 2012Q1

REPORT INFORMATION
  Report Type: 
  Country: None (occurrence: None)
  Receive Date: 20120118
  Receipt Date: 20120109
  Transmission Date: 20120608
  Serious: Yes (Death)
  Sender: FDA-Public Use
  Company Number: JPI-P-003821

PATIENT
  Age: 67 Year
  Sex: Male

DRUGS (6)
  1. LISINOPRIL [Concomitant]
  2. XYREM [Suspect]
     Indication: SLEEP DISORDER
     Dosage: ORAL 9 GM (4.5 GM, 2 IN 1 D), ORAL
     Route: 048
     Dates: end: 20080512
  3. ATORVASTATIN CALCIUM [Concomitant]
  4. GLYBURIDE AND METFORMIN HYDROCHLORIDE [Concomitant]
  5. DESIPRAMINE HYDROCHLORIDE [Suspect]
     Indication: PRODUCT USED FOR UNKNOWN INDICATION
     Dosage: 50 MG (50 MG, 1 IN 1 D)
  6. CARVEDILOL [Concomitant]

REACTIONS (3)
  - METASTASES TO LIVER [None]
  - MALAISE [None]
  - GALLBLADDER CANCER METASTATIC [None]
